FAERS Safety Report 18947698 (Version 1)
Quarter: 2021Q1

REPORT INFORMATION
  Report Type: Spontaneous
  Country: GB (occurrence: GB)
  Receive Date: 20210226
  Receipt Date: 20210226
  Transmission Date: 20210420
  Serious: Yes (Other)
  Sender: FDA-Public Use
  Company Number: GB-TEVA-2021-GB-1881553

PATIENT
  Age: 54 Year
  Sex: Female
  Weight: 63 kg

DRUGS (10)
  1. ACCORD HEALTHCARE CLARITHROMYCIN [Concomitant]
     Indication: ILL-DEFINED DISORDER
  2. OMEPRAZOL [Concomitant]
     Active Substance: OMEPRAZOLE
     Indication: ILL-DEFINED DISORDER
  3. ZINC. [Concomitant]
     Active Substance: ZINC
     Indication: ILL-DEFINED DISORDER
  4. ACCORD?UK METRONIDAZOLE [Concomitant]
     Indication: ILL-DEFINED DISORDER
  5. VITAMIN D3 [Concomitant]
     Active Substance: CHOLECALCIFEROL
     Indication: ILL-DEFINED DISORDER
  6. ZINC. [Concomitant]
     Active Substance: ZINC
     Indication: ILL-DEFINED DISORDER
  7. ZINC. [Concomitant]
     Active Substance: ZINC
     Indication: ILL-DEFINED DISORDER
  8. ZINC. [Concomitant]
     Active Substance: ZINC
     Indication: ILL-DEFINED DISORDER
  9. LEVOFLOXACIN. [Suspect]
     Active Substance: LEVOFLOXACIN
     Indication: HELICOBACTER INFECTION
  10. LEVOFLOXACIN. [Suspect]
     Active Substance: LEVOFLOXACIN
     Indication: ILL-DEFINED DISORDER
     Dosage: 500 MILLIGRAM DAILY; 250MG
     Route: 048
     Dates: start: 20210209, end: 20210210

REACTIONS (3)
  - Tendon pain [Not Recovered/Not Resolved]
  - Palpitations [Not Recovered/Not Resolved]
  - Adverse drug reaction [Recovering/Resolving]

NARRATIVE: CASE EVENT DATE: 20210210
